FAERS Safety Report 6037555-X (Version None)
Quarter: 2009Q1

REPORT INFORMATION
  Report Type: 
  Country: None (occurrence: None)
  Receive Date: 20090114
  Receipt Date: 20090105
  Transmission Date: 20090719
  Serious: Yes (Other)
  Sender: FDA-Public Use
  Company Number: AU-PFIZER INC-2008099279

PATIENT

DRUGS (1)
  1. LYRICA [Suspect]

REACTIONS (2)
  - HYPOAESTHESIA FACIAL [None]
  - SPEECH DISORDER [None]
